FAERS Safety Report 7743346-1 (Version None)
Quarter: 2011Q3

REPORT INFORMATION
  Report Type: 
  Country: None (occurrence: None)
  Receive Date: 20110826
  Receipt Date: 20110816
  Transmission Date: 20111222
  Serious: Yes (Hospitalization, Other)
  Sender: FDA-Public Use
  Company Number: 2010SP043244

PATIENT
  Age: 22 Year
  Sex: Female
  Weight: 65.7716 kg

DRUGS (5)
  1. NUVARING [Suspect]
  2. NUVARING [Suspect]
     Indication: CONTRACEPTION
     Dates: start: 20040501, end: 20080801
  3. NUVARING [Suspect]
  4. COUMADIN [Suspect]
     Indication: ANTICOAGULANT THERAPY
  5. NUVARING [Suspect]

REACTIONS (21)
  - BIOPSY VULVA ABNORMAL [None]
  - PULMONARY EMBOLISM [None]
  - OVARIAN CYST [None]
  - ALCOHOL USE [None]
  - CONTUSION [None]
  - CARDIAC DISORDER [None]
  - PREGNANCY WITH CONTRACEPTIVE DEVICE [None]
  - MIGRAINE [None]
  - IMPAIRED WORK ABILITY [None]
  - SCOLIOSIS [None]
  - GASTRIC OPERATION [None]
  - THYROID DISORDER [None]
  - UPPER-AIRWAY COUGH SYNDROME [None]
  - WISDOM TEETH REMOVAL [None]
  - ANXIETY [None]
  - CHILLS [None]
  - ABORTION [None]
  - DEHYDRATION [None]
  - INFECTION [None]
  - DIARRHOEA [None]
  - MATERNAL EXPOSURE DURING PREGNANCY [None]
